FAERS Safety Report 13144800 (Version 1)
Quarter: 2017Q1

REPORT INFORMATION
  Report Type: Spontaneous
  Country: US (occurrence: US)
  Receive Date: 20170124
  Receipt Date: 20170124
  Transmission Date: 20170428
  Serious: Yes (Death)
  Sender: FDA-Public Use
  Company Number: US-PFIZER INC-2017029089

PATIENT
  Age: 32 Year
  Sex: Female

DRUGS (4)
  1. ACETAMINOPHEN AND CODEINE [Suspect]
     Active Substance: ACETAMINOPHEN\CODEINE PHOSPHATE
     Dosage: UNK
  2. NAPROXEN. [Suspect]
     Active Substance: NAPROXEN
     Dosage: UNK
  3. DIAZEPAM. [Suspect]
     Active Substance: DIAZEPAM
     Dosage: UNK
  4. CITALOPRAM [Suspect]
     Active Substance: CITALOPRAM HYDROBROMIDE
     Dosage: UNK

REACTIONS (3)
  - Cardiac arrest [Fatal]
  - Respiratory arrest [Fatal]
  - Death [Fatal]

NARRATIVE: CASE EVENT DATE: 2015
